FAERS Safety Report 7195448 (Version 2)
Quarter: 2013Q1

REPORT INFORMATION
  Report Type: Spontaneous
  Country: ES (occurrence: ES)
  Receive Date: 20091201
  Receipt Date: 20130312
  Transmission Date: 20140127
  Serious: Yes (Hospitalization, Other)
  Sender: FDA-Public Use
  Company Number: ES-ELI_LILLY_AND_COMPANY-ES200911005184

PATIENT
  Age: 79 None
  Sex: Female

DRUGS (4)
  1. FORSTEO [Suspect]
     Indication: OSTEOPOROSIS
     Dosage: 20 UG, UNKNOWN
     Route: 058
     Dates: start: 200903
  2. MORFINE [Concomitant]
     Indication: PAIN
     Dosage: UNK, UNKNOWN
     Route: 065
  3. ANALGESICS [Concomitant]
     Indication: PAIN
     Dosage: UNK, UNKNOWN
     Route: 065
  4. FLUOXETINE [Concomitant]
     Dosage: UNK, UNKNOWN
     Route: 065

REACTIONS (8)
  - Renal impairment [Unknown]
  - Hepatic failure [Unknown]
  - Leukaemia [Unknown]
  - Sepsis [Not Recovered/Not Resolved]
  - Pneumonia [Unknown]
  - Nephrolithiasis [Unknown]
  - Thrombocytopenia [Unknown]
  - Somnolence [Unknown]
